FAERS Safety Report 14928840 (Version 1)
Quarter: 2018Q2

REPORT INFORMATION
  Report Type: Spontaneous
  Country: US (occurrence: US)
  Receive Date: 20180504
  Receipt Date: 20180504
  Transmission Date: 20180711
  Serious: Yes (Hospitalization)
  Sender: FDA-Public Use
  Company Number: None

PATIENT
  Age: 46 Year
  Sex: Male

DRUGS (20)
  1. GLYBURIDE. [Concomitant]
     Active Substance: GLYBURIDE
  2. COLCHICINE. [Concomitant]
     Active Substance: COLCHICINE
  3. FUROSEMIDE. [Concomitant]
     Active Substance: FUROSEMIDE
  4. ALLOPURINOL. [Concomitant]
     Active Substance: ALLOPURINOL
  5. PROGRAF [Suspect]
     Active Substance: TACROLIMUS\TACROLIMUS ANHYDROUS
     Indication: RENAL TRANSPLANT
     Route: 048
     Dates: start: 20160329
  6. CELLCEPT [Suspect]
     Active Substance: MYCOPHENOLATE MOFETIL\MYCOPHENOLATE MOFETIL HYDROCHLORIDE
     Indication: RENAL TRANSPLANT
     Route: 048
     Dates: start: 20170118
  7. CLOPIDOGREL [Concomitant]
     Active Substance: CLOPIDOGREL BISULFATE
  8. COLCRYS [Concomitant]
     Active Substance: COLCHICINE
  9. AMOXICILLIN. [Concomitant]
     Active Substance: AMOXICILLIN
  10. CARVEDILOL. [Concomitant]
     Active Substance: CARVEDILOL
  11. CLONIDINE. [Concomitant]
     Active Substance: CLONIDINE
  12. LOSARTAN POT [Concomitant]
     Active Substance: LOSARTAN POTASSIUM
  13. PREDNISONE. [Concomitant]
     Active Substance: PREDNISONE
  14. PROGRAF [Suspect]
     Active Substance: TACROLIMUS\TACROLIMUS ANHYDROUS
     Indication: RENAL TRANSPLANT
     Dosage: ?          OTHER FREQUENCY:AM;?
     Route: 048
  15. SODIUM BICAR [Concomitant]
  16. MONTELUKAST [Concomitant]
     Active Substance: MONTELUKAST SODIUM
  17. SERTRALINE [Concomitant]
     Active Substance: SERTRALINE HYDROCHLORIDE
  18. TEMAZEPAM. [Concomitant]
     Active Substance: TEMAZEPAM
  19. TEMAZEPAM. [Concomitant]
     Active Substance: TEMAZEPAM
  20. ROSUVASTATIN. [Concomitant]
     Active Substance: ROSUVASTATIN

REACTIONS (1)
  - Pneumonia [None]
